FAERS Safety Report 12172185 (Version 2)
Quarter: 2016Q2

REPORT INFORMATION
  Report Type: Spontaneous
  Country: PL (occurrence: PL)
  Receive Date: 20160311
  Receipt Date: 20160407
  Transmission Date: 20160815
  Serious: Yes (Other)
  Sender: FDA-Public Use
  Company Number: PL-ALLERGAN-1640023US

PATIENT
  Age: 37 Year
  Sex: Female

DRUGS (3)
  1. LEVOSERT [Suspect]
     Active Substance: LEVONORGESTREL
     Indication: OLIGOMENORRHOEA
  2. LEVOSERT [Suspect]
     Active Substance: LEVONORGESTREL
     Indication: CONTRACEPTION
     Dosage: 20 ?G, QD
     Route: 015
     Dates: start: 20151223, end: 20160217
  3. LEVOSERT [Suspect]
     Active Substance: LEVONORGESTREL
     Indication: DYSMENORRHOEA

REACTIONS (3)
  - Off label use [Unknown]
  - Device expulsion [Recovered/Resolved]
  - Uterine haemorrhage [Recovered/Resolved]

NARRATIVE: CASE EVENT DATE: 20151223
